FAERS Safety Report 5750319-7 (Version None)
Quarter: 2008Q2

REPORT INFORMATION
  Report Type: 
  Country: None (occurrence: None)
  Receive Date: 20080521
  Receipt Date: 20080521
  Transmission Date: 20081010
  Serious: No
  Sender: FDA-Public Use
  Company Number: None

PATIENT
  Age: 56 Year
  Sex: Male
  Weight: 62 kg

DRUGS (1)
  1. CYTOXAN [Suspect]
     Dosage: 3300MG OVER 1 HOUR DAILY X 2 DAYS IV DRIP
     Route: 041
     Dates: start: 20080512, end: 20080512

REACTIONS (4)
  - BLOOD PRESSURE INCREASED [None]
  - CHEST PAIN [None]
  - INFUSION RELATED REACTION [None]
  - PAIN IN JAW [None]
